FAERS Safety Report 19270110 (Version 2)
Quarter: 2021Q2

REPORT INFORMATION
  Report Type: Spontaneous
  Country: US (occurrence: US)
  Receive Date: 20210518
  Receipt Date: 20210621
  Transmission Date: 20210717
  Serious: Yes (Other)
  Sender: FDA-Public Use
  Company Number: US-PFIZER INC-2021507675

PATIENT
  Age: 58 Year
  Sex: Female

DRUGS (1)
  1. TOVIAZ [Suspect]
     Active Substance: FESOTERODINE FUMARATE
     Dosage: UNK

REACTIONS (9)
  - Cerebral disorder [Unknown]
  - Dysgraphia [Unknown]
  - Intentional product misuse [Unknown]
  - Emotional disorder [Unknown]
  - Urinary tract disorder [Unknown]
  - Drug ineffective [Unknown]
  - Multiple sclerosis [Unknown]
  - Fall [Unknown]
  - Gait disturbance [Unknown]
